FAERS Safety Report 15084845 (Version 4)
Quarter: 2019Q3

REPORT INFORMATION
  Report Type: Spontaneous
  Country: US (occurrence: US)
  Receive Date: 20180628
  Receipt Date: 20190726
  Transmission Date: 20191004
  Serious: No
  Sender: FDA-Public Use
  Company Number: US-ACTELION-A-US2018-174113

PATIENT
  Age: 1 Year
  Sex: Male
  Weight: 6.35 kg

DRUGS (1)
  1. TRACLEER [Suspect]
     Active Substance: BOSENTAN
     Indication: PULMONARY HYPERTENSION
     Dosage: 16 MG, BID
     Route: 049
     Dates: start: 20180414, end: 20190519

REACTIONS (4)
  - Aspartate aminotransferase increased [Recovering/Resolving]
  - Liver function test increased [Recovering/Resolving]
  - Alanine aminotransferase increased [Recovering/Resolving]
  - Gastrostomy [Unknown]

NARRATIVE: CASE EVENT DATE: 20190507
